FAERS Safety Report 12805208 (Version 1)
Quarter: 2016Q4

REPORT INFORMATION
  Report Type: Other
  Country: AU (occurrence: AU)
  Receive Date: 20161004
  Receipt Date: 20161004
  Transmission Date: 20170207
  Serious: Yes (Other)
  Sender: FDA-Public Use
  Company Number: AU-LUPIN PHARMACEUTICALS INC.-2016-02793

PATIENT
  Age: 34 Year
  Sex: Female

DRUGS (1)
  1. TOPIRAMATE. [Suspect]
     Active Substance: TOPIRAMATE
     Indication: MIGRAINE PROPHYLAXIS
     Route: 065

REACTIONS (1)
  - Visual field defect [Recovering/Resolving]
